FAERS Safety Report 9522623 (Version 1)
Quarter: 2013Q1

REPORT INFORMATION
  Report Type: Spontaneous
  Country: US (occurrence: None)
  Receive Date: 20130305
  Receipt Date: 20130305
  Transmission Date: 20140127
  Serious: Yes (Other)
  Sender: FDA-Public Use
  Company Number: 163-21880-12070749

PATIENT
  Sex: Female
  Weight: 61.24 kg

DRUGS (12)
  1. REVLIMID [Suspect]
     Indication: PLASMA CELL MYELOMA
     Dosage: 10 MG, 1 IN 1 D, PO
     Route: 048
     Dates: start: 200903, end: 2009
  2. ATIVAN (LORAZEPAM) - (UNKNOWN) [Concomitant]
  3. CYCLOPHOSPHAMIDE (-CYCLOPHOSPHAMIDE) (UNKNOWN) [Concomitant]
  4. DEXAMETHASONE (DEX-AMETHASONE) (UNKNOWN) [Concomitant]
  5. NEURONTIN (GABAPENTIN) (UNKNOWN) [Concomitant]
  6. NEXIUM (ESOMEPRAZOLE) (UNKNOWN) [Concomitant]
  7. POTASSIUM (POTASSIUM) (UNKNOWN) [Concomitant]
  8. VITAMIN B (VITAMIN B) (UNKNOWN) [Concomitant]
  9. VITAMIN C [Concomitant]
  10. VITAMIN D (ERGOCALCIFEROL) (UNKNOWN) [Concomitant]
  11. VITAMIN E (TOCOPHEROL) (UNKNOWN) [Concomitant]
  12. ZOMETA (ZOLEDRONIC ACID) (UNKNOWN) [Concomitant]

REACTIONS (1)
  - Full blood count decreased [None]
